FAERS Safety Report 9929496 (Version 3)
Quarter: 2014Q1

REPORT INFORMATION
  Report Type: Spontaneous
  Country: US (occurrence: US)
  Receive Date: 20140227
  Receipt Date: 20140321
  Transmission Date: 20141002
  Serious: Yes (Life-Threatening)
  Sender: FDA-Public Use
  Company Number: GXBR2014US000733

PATIENT
  Sex: Female
  Weight: 92.52 kg

DRUGS (4)
  1. FUROSEMIDE TABLETS USP [Suspect]
     Indication: FLUID RETENTION
     Dosage: 80 MG (TWO 20MG TABS AND ONE 40MG TAB), QD
     Route: 048
     Dates: start: 201401
  2. FUROSEMIDE TABLETS USP [Suspect]
     Dosage: 40 MG, QD
     Route: 048
     Dates: start: 201312, end: 201401
  3. FUROSEMIDE TABLETS USP [Suspect]
     Dosage: 60 MG (ONE 20MG TAB AND ONE 40MG TAB), QD
     Route: 048
     Dates: start: 201401, end: 201401
  4. FUROSEMIDE TABLETS USP [Suspect]
     Dosage: UNK MG, UNK
     Route: 048
     Dates: end: 201312

REACTIONS (5)
  - Gastric haemorrhage [Recovered/Resolved]
  - Oedema [Not Recovered/Not Resolved]
  - Urine output decreased [Not Recovered/Not Resolved]
  - Abasia [Not Recovered/Not Resolved]
  - Drug ineffective [Not Recovered/Not Resolved]
